FAERS Safety Report 4539412-4 (Version None)
Quarter: 2004Q4

REPORT INFORMATION
  Report Type: 
  Country: None (occurrence: None)
  Receive Date: 20041222
  Receipt Date: 20041206
  Transmission Date: 20050328
  Serious: Yes (Hospitalization)
  Sender: FDA-Public Use
  Company Number: 2004GB02979

PATIENT
  Age: 86 Year
  Sex: Male

DRUGS (6)
  1. ATENOLOL [Suspect]
     Dosage: 25 MG DAILY PO
     Route: 048
     Dates: start: 20041001, end: 20041118
  2. TIMOLOL MALEATE [Suspect]
     Dosage: 1 DF DAILY
     Dates: end: 20041118
  3. NIFEDIPINE [Concomitant]
  4. LATANOPROST [Concomitant]
  5. BEZAFIBRATE [Concomitant]
  6. IBUPROFEN [Concomitant]

REACTIONS (5)
  - BRADYCARDIA [None]
  - CONFUSIONAL STATE [None]
  - FALL [None]
  - GASTROINTESTINAL DISORDER [None]
  - URINARY TRACT DISORDER [None]
